FAERS Safety Report 16322523 (Version 5)
Quarter: 2019Q4

REPORT INFORMATION
  Report Type: Report from Study
  Country: FR (occurrence: FR)
  Receive Date: 20190516
  Receipt Date: 20191227
  Transmission Date: 20200122
  Serious: Yes (Hospitalization)
  Sender: FDA-Public Use
  Company Number: FR-EISAI MEDICAL RESEARCH-EC-2019-054504

PATIENT
  Age: 70 Year
  Sex: Female
  Weight: 85 kg

DRUGS (13)
  1. SIFROL [Concomitant]
     Active Substance: PRAMIPEXOLE
  2. OMEPRAZOLE. [Concomitant]
     Active Substance: OMEPRAZOLE
  3. SINEMET [Concomitant]
     Active Substance: CARBIDOPA\LEVODOPA
  4. LEVOTHYROX [Concomitant]
     Active Substance: LEVOTHYROXINE
  5. ACTISKENAN [Concomitant]
     Active Substance: MORPHINE SULFATE
  6. LENVATINIB [Suspect]
     Active Substance: LENVATINIB
     Route: 048
     Dates: start: 20190520, end: 20190812
  7. LENVATINIB [Suspect]
     Active Substance: LENVATINIB
     Route: 048
     Dates: start: 20190909
  8. DOLIPRANE [Concomitant]
     Active Substance: ACETAMINOPHEN
  9. LENVATINIB [Suspect]
     Active Substance: LENVATINIB
     Indication: THYROID CANCER
     Route: 048
     Dates: start: 20181105, end: 20190327
  10. LENVATINIB [Suspect]
     Active Substance: LENVATINIB
     Route: 048
     Dates: start: 20190410, end: 2019
  11. TRIVASTAL [Concomitant]
     Active Substance: PIRIBEDIL
  12. AZILECT [Concomitant]
     Active Substance: RASAGILINE MESYLATE
  13. XGEVA [Concomitant]
     Active Substance: DENOSUMAB

REACTIONS (1)
  - Pain in extremity [Recovering/Resolving]

NARRATIVE: CASE EVENT DATE: 20190313
